FAERS Safety Report 5155098-2 (Version None)
Quarter: 2006Q4

REPORT INFORMATION
  Report Type: 
  Country: None (occurrence: None)
  Receive Date: 20061121
  Receipt Date: 20061113
  Transmission Date: 20070319
  Serious: Yes (Life-Threatening, Other)
  Sender: FDA-Public Use
  Company Number: GB-GLAXOSMITHKLINE-B0447269A

PATIENT
  Age: 10 Year
  Sex: Male
  Weight: 30 kg

DRUGS (5)
  1. ATROVENT [Suspect]
     Indication: STATUS ASTHMATICUS
     Route: 055
  2. SALBUTAMOL NEBULISER [Suspect]
     Indication: STATUS ASTHMATICUS
     Route: 055
  3. SALBUTAMOL [Concomitant]
  4. CORTICOSTEROIDS [Concomitant]
     Route: 055
  5. BETA AGONIST [Concomitant]
     Route: 055

REACTIONS (9)
  - BRADYCARDIA [None]
  - CONDITION AGGRAVATED [None]
  - DYSPNOEA [None]
  - MEAN ARTERIAL PRESSURE DECREASED [None]
  - MYDRIASIS [None]
  - PUPILLARY REFLEX IMPAIRED [None]
  - PUPILS UNEQUAL [None]
  - TACHYCARDIA [None]
  - WHEEZING [None]
